FAERS Safety Report 9339211 (Version 1)
Quarter: 2013Q2

REPORT INFORMATION
  Report Type: Spontaneous
  Country: US (occurrence: None)
  Receive Date: 20130605
  Receipt Date: 20130605
  Transmission Date: 20140414
  Serious: Yes (Hospitalization)
  Sender: FDA-Public Use
  Company Number: 13AE009

PATIENT
  Sex: Female

DRUGS (1)
  1. WAL-DRYL [Suspect]
     Indication: MULTIPLE ALLERGIES
     Dosage: 2 TABLETS BY MOUTH
     Route: 048
     Dates: start: 20130507

REACTIONS (4)
  - Dyspnoea [None]
  - Palpitations [None]
  - Convulsion [None]
  - Muscle twitching [None]
